FAERS Safety Report 7540668-4 (Version None)
Quarter: 2011Q2

REPORT INFORMATION
  Report Type: 
  Country: None (occurrence: None)
  Receive Date: 20110610
  Receipt Date: 20110601
  Transmission Date: 20111010
  Serious: Yes (Other)
  Sender: FDA-Public Use
  Company Number: JP-ASTRAZENECA-2011SE32561

PATIENT
  Age: 60 Year
  Sex: Male
  Weight: 67 kg

DRUGS (4)
  1. CLARITIN [Concomitant]
     Route: 048
     Dates: start: 20080806
  2. CRESTOR [Suspect]
     Indication: DYSLIPIDAEMIA
     Route: 048
     Dates: start: 20110517, end: 20110525
  3. SINGULAIR [Concomitant]
     Indication: ASTHMA
     Route: 048
     Dates: start: 20080806
  4. THEO-DUR [Concomitant]
     Indication: ASTHMA
     Route: 048
     Dates: start: 20080806

REACTIONS (1)
  - TOXIC SKIN ERUPTION [None]
